FAERS Safety Report 11560063 (Version 1)
Quarter: 2015Q3

REPORT INFORMATION
  Report Type: Spontaneous
  Country: CA (occurrence: CA)
  Receive Date: 20150928
  Receipt Date: 20150928
  Transmission Date: 20151125
  Serious: Yes (Other)
  Sender: FDA-Public Use
  Company Number: CA-TEVA-596981ACC

PATIENT
  Age: 6 Year
  Sex: Female
  Weight: 26 kg

DRUGS (1)
  1. AMOXICILLIN. [Suspect]
     Active Substance: AMOXICILLIN
     Indication: PHARYNGITIS STREPTOCOCCAL
     Dosage: 1275 MILLIGRAM DAILY;
     Route: 048

REACTIONS (4)
  - Urticaria [Recovered/Resolved]
  - Serum ferritin increased [Recovered/Resolved]
  - Arthralgia [Recovered/Resolved]
  - Red blood cell sedimentation rate increased [Recovered/Resolved]
